FAERS Safety Report 5858137-6 (Version None)
Quarter: 2008Q3

REPORT INFORMATION
  Report Type: 
  Country: None (occurrence: None)
  Receive Date: 20080826
  Receipt Date: 20080822
  Transmission Date: 20090109
  Serious: Yes (Hospitalization, Disabling)
  Sender: FDA-Public Use
  Company Number: A0683065A

PATIENT
  Age: 52 Year
  Sex: Male
  Weight: 129.5 kg

DRUGS (9)
  1. AVANDIA [Suspect]
     Dosage: 8MG PER DAY
     Route: 048
     Dates: start: 20001208, end: 20080201
  2. ACTOS [Concomitant]
     Dates: start: 20030508
  3. GLUCOPHAGE [Concomitant]
     Dates: start: 20010510, end: 20030701
  4. METFORMIN HCL [Concomitant]
     Dates: start: 20070101, end: 20070101
  5. GLUCOTROL [Concomitant]
     Dates: start: 20030701
  6. GLUCOTROL XL [Concomitant]
     Dates: start: 20060401
  7. LORTAB [Concomitant]
  8. HYDROCODONE BITARTRATE [Concomitant]
  9. SOMA [Concomitant]

REACTIONS (3)
  - CARDIAC DISORDER [None]
  - CARDIAC FAILURE CONGESTIVE [None]
  - CARDIOVASCULAR DISORDER [None]
